FAERS Safety Report 17572309 (Version 1)
Quarter: 2020Q1

REPORT INFORMATION
  Report Type: Spontaneous
  Country: AU (occurrence: AU)
  Receive Date: 20200323
  Receipt Date: 20200323
  Transmission Date: 20200409
  Serious: Yes (Hospitalization, Other)
  Sender: FDA-Public Use
  Company Number: AU-JAZZ-2020-AU-003058

PATIENT
  Age: 48 Year
  Sex: Male

DRUGS (2)
  1. DEFIBROTIDE [Suspect]
     Active Substance: DEFIBROTIDE (BOVINE)
     Indication: VENOOCCLUSIVE DISEASE
     Dosage: 400 MG QID
     Route: 042
     Dates: start: 20200217
  2. DEFIBROTIDE [Suspect]
     Active Substance: DEFIBROTIDE (BOVINE)
     Dosage: UNK
     Dates: end: 202003

REACTIONS (5)
  - Counterfeit product administered [Unknown]
  - Hypotension [Unknown]
  - Wrong technique in product usage process [Unknown]
  - Sepsis [Recovered/Resolved]
  - Pleural effusion [Recovered/Resolved]

NARRATIVE: CASE EVENT DATE: 2020
